FAERS Safety Report 7346609-7 (Version None)
Quarter: 2011Q1

REPORT INFORMATION
  Report Type: 
  Country: None (occurrence: None)
  Receive Date: 20110311
  Receipt Date: 20110301
  Transmission Date: 20110831
  Serious: Yes (Other)
  Sender: FDA-Public Use
  Company Number: CA-JNJFOC-20110301665

PATIENT
  Sex: Female
  Weight: 76 kg

DRUGS (12)
  1. PURINETHOL [Concomitant]
  2. NICODERM [Concomitant]
  3. BENADRYL [Concomitant]
     Indication: PREMEDICATION
     Route: 048
  4. FOLIC ACID [Concomitant]
  5. PANTOPRAZOLE [Concomitant]
  6. ACETAMINOPHEN [Concomitant]
     Indication: PREMEDICATION
     Route: 048
  7. CALCIUM AND VITAMIN D [Concomitant]
     Dosage: 400 IU-500MG
  8. METHOTREXATE [Concomitant]
     Route: 050
  9. PAROXETINE [Concomitant]
  10. REMICADE [Suspect]
     Indication: CROHN'S DISEASE
     Route: 042
  11. PENTASA [Concomitant]
  12. ZOPICLONE [Concomitant]

REACTIONS (2)
  - AUTOIMMUNE HEPATITIS [None]
  - SYSTEMIC LUPUS ERYTHEMATOSUS [None]
